FAERS Safety Report 9883664 (Version 1)
Quarter: 2014Q1

REPORT INFORMATION
  Report Type: Spontaneous
  Country: US (occurrence: US)
  Receive Date: 20140210
  Receipt Date: 20140210
  Transmission Date: 20141002
  Serious: No
  Sender: FDA-Public Use
  Company Number: US-B.I. PHARMACEUTICALS,INC./RIDGEFIELD-2014-BI-04219BP

PATIENT
  Age: 67 Year
  Sex: Female

DRUGS (1)
  1. GILOTRIF [Suspect]
     Indication: NON-SMALL CELL LUNG CANCER METASTATIC
     Dosage: 30 MG
     Route: 048
     Dates: start: 201311, end: 201401

REACTIONS (2)
  - Abdominal pain [Not Recovered/Not Resolved]
  - Off label use [Unknown]
